FAERS Safety Report 5359025-4 (Version None)
Quarter: 2007Q2

REPORT INFORMATION
  Report Type: 
  Country: None (occurrence: None)
  Receive Date: 20070615
  Receipt Date: 20070611
  Transmission Date: 20071010
  Serious: Yes (Life-Threatening, Hospitalization, Other)
  Sender: FDA-Public Use
  Company Number: US-MERCK-90120349

PATIENT
  Age: 48 Year
  Sex: Male
  Weight: 74 kg

DRUGS (7)
  1. FLEXERIL [Concomitant]
     Indication: PAIN
     Route: 048
     Dates: start: 19800101
  2. MEVACOR [Suspect]
     Indication: HYPERCHOLESTEROLAEMIA
     Route: 048
     Dates: start: 19880101, end: 19901107
  3. MEVACOR [Suspect]
     Route: 048
     Dates: start: 19880101, end: 19990101
  4. TYLENOL [Concomitant]
     Route: 065
     Dates: start: 19800101
  5. ASPIRIN [Concomitant]
     Route: 065
  6. DALMANE [Concomitant]
     Route: 065
  7. NIACIN [Concomitant]
     Route: 065

REACTIONS (5)
  - BLADDER CANCER [None]
  - CARDIAC FAILURE [None]
  - CATARACT [None]
  - LIVER DISORDER [None]
  - RHABDOMYOLYSIS [None]
